FAERS Safety Report 9451140 (Version 1)
Quarter: 2013Q3

REPORT INFORMATION
  Report Type: Spontaneous
  Country: IN (occurrence: IN)
  Receive Date: 20130809
  Receipt Date: 20130809
  Transmission Date: 20140515
  Serious: Yes (Other)
  Sender: FDA-Public Use
  Company Number: PHHY2013IN084263

PATIENT
  Age: 47 Year
  Sex: Male

DRUGS (2)
  1. OFLOXACINE [Suspect]
     Indication: LOWER RESPIRATORY TRACT INFECTION
  2. IBUPROFEN W/PARACETAMOL [Concomitant]
     Indication: PYREXIA

REACTIONS (4)
  - Hypomania [Recovered/Resolved]
  - Insomnia [Recovered/Resolved]
  - Logorrhoea [Recovered/Resolved]
  - Elevated mood [Recovered/Resolved]
